FAERS Safety Report 15545604 (Version 1)
Quarter: 2018Q4

REPORT INFORMATION
  Report Type: Other
  Country: IT (occurrence: IT)
  Receive Date: 20181024
  Receipt Date: 20181024
  Transmission Date: 20190205
  Serious: Yes (Other)
  Sender: FDA-Public Use
  Company Number: IT-CELLTRION INC.-2018IT023226

PATIENT

DRUGS (2)
  1. REMSIMA [Suspect]
     Active Substance: INFLIXIMAB
     Indication: CROHN^S DISEASE
     Dosage: 6 MG, TIME INTERVAL UNIT
     Route: 042
     Dates: start: 20170101, end: 20170101
  2. REMSIMA [Suspect]
     Active Substance: INFLIXIMAB
     Dosage: 6 MG, TIME INTERVAL UNIT
     Route: 042
     Dates: start: 20180925, end: 20180925

REACTIONS (2)
  - Respiratory failure [Recovered/Resolved]
  - Underdose [Unknown]

NARRATIVE: CASE EVENT DATE: 20180925
